FAERS Safety Report 12144039 (Version 1)
Quarter: 2016Q1

REPORT INFORMATION
  Report Type: Spontaneous
  Country: FR (occurrence: FR)
  Receive Date: 20160304
  Receipt Date: 20160304
  Transmission Date: 20160526
  Serious: Yes (Hospitalization, Other)
  Sender: FDA-Public Use
  Company Number: FR-BRISTOL-MYERS SQUIBB COMPANY-BMS-2016-014509

PATIENT
  Age: 55 Year
  Sex: Female

DRUGS (1)
  1. VIDEX [Suspect]
     Active Substance: DIDANOSINE
     Indication: PRODUCT USED FOR UNKNOWN INDICATION
     Dosage: UNK
     Route: 048
     Dates: start: 20001222, end: 201511

REACTIONS (2)
  - Diarrhoea [Recovering/Resolving]
  - Pancreatic insufficiency [Recovering/Resolving]

NARRATIVE: CASE EVENT DATE: 201412
